FAERS Safety Report 8238789-6 (Version None)
Quarter: 2012Q1

REPORT INFORMATION
  Report Type: 
  Country: None (occurrence: None)
  Receive Date: 20120327
  Receipt Date: 20120319
  Transmission Date: 20120608
  Serious: Yes (Hospitalization, Other)
  Sender: FDA-Public Use
  Company Number: US-ELI_LILLY_AND_COMPANY-US201007000211

PATIENT
  Sex: Female

DRUGS (13)
  1. FORTEO [Suspect]
     Indication: OSTEOPOROSIS
     Dosage: 20 UG, DAILY (1/D)
     Route: 058
     Dates: start: 20100506
  2. FORTEO [Suspect]
     Dosage: 20 UG, DAILY (1/D)
     Route: 058
     Dates: end: 20110131
  3. LASIX [Concomitant]
  4. AMLODIPINE [Concomitant]
  5. SYNTHROID [Concomitant]
  6. COUMADIN [Concomitant]
  7. TOPROL-XL [Concomitant]
  8. AMIODARONE HCL [Concomitant]
  9. CALCIUM CARBONATE [Concomitant]
  10. NEXIUM [Concomitant]
  11. SINGULAIR [Concomitant]
  12. FORTEO [Suspect]
     Dosage: 20 UG, DAILY (1/D)
     Route: 058
  13. VITAMIN D [Concomitant]

REACTIONS (9)
  - BRONCHITIS [None]
  - OEDEMA PERIPHERAL [None]
  - PULMONARY ALVEOLAR HAEMORRHAGE [None]
  - PULMONARY HYPERTENSION [None]
  - INJECTION SITE HAEMATOMA [None]
  - ASTHENIA [None]
  - JOINT SWELLING [None]
  - BLOOD CALCIUM INCREASED [None]
  - THYROID FUNCTION TEST ABNORMAL [None]
